FAERS Safety Report 14727816 (Version 2)
Quarter: 2018Q2

REPORT INFORMATION
  Report Type: Spontaneous
  Country: ES (occurrence: ES)
  Receive Date: 20180406
  Receipt Date: 20180625
  Transmission Date: 20180711
  Serious: Yes (Life-Threatening, Hospitalization, Other)
  Sender: FDA-Public Use
  Company Number: PHHY2018ES058881

PATIENT
  Age: 74 Year
  Sex: Male

DRUGS (5)
  1. ENALAPRIL [Concomitant]
     Active Substance: ENALAPRIL
     Indication: PRODUCT USED FOR UNKNOWN INDICATION
     Dosage: 5 MG, Q12H
     Route: 065
  2. CARBAMAZEPINE. [Suspect]
     Active Substance: CARBAMAZEPINE
     Indication: TRIGEMINAL NEURALGIA
     Dosage: 200 MG, Q12H
     Route: 065
  3. CARBAMAZEPINE. [Suspect]
     Active Substance: CARBAMAZEPINE
     Dosage: 200 MG, QD
     Route: 065
  4. LACOSAMIDE. [Suspect]
     Active Substance: LACOSAMIDE
     Indication: TRIGEMINAL NEURALGIA
     Dosage: 100 MG, BID
     Route: 042
  5. ESLICARBAZEPINE [Suspect]
     Active Substance: ESLICARBAZEPINE
     Indication: TRIGEMINAL NEURALGIA
     Dosage: 400 MG, QD (SINGLE NIGHT DOSE)
     Route: 065

REACTIONS (4)
  - Off label use [Unknown]
  - Drug intolerance [Unknown]
  - Cardio-respiratory arrest [Unknown]
  - Atrioventricular block complete [Unknown]
